FAERS Safety Report 17022915 (Version 2)
Quarter: 2022Q4

REPORT INFORMATION
  Report Type: Report from Study
  Country: US (occurrence: US)
  Receive Date: 20191112
  Receipt Date: 20221101
  Transmission Date: 20230113
  Serious: No
  Sender: FDA-Public Use
  Company Number: US-SHIRE-US201938663

PATIENT
  Age: 8 Year
  Sex: Female

DRUGS (1)
  1. HUMAN IMMUNOGLOBULIN G [Suspect]
     Active Substance: HUMAN IMMUNOGLOBULIN G
     Indication: Primary immunodeficiency syndrome
     Dosage: UNK
     Route: 058

REACTIONS (4)
  - Rash morbilliform [Unknown]
  - Pyrexia [Unknown]
  - Infection [Unknown]
  - Malaise [Unknown]

NARRATIVE: CASE EVENT DATE: 20191108
